FAERS Safety Report 8849229 (Version 1)
Quarter: 2012Q4

REPORT INFORMATION
  Report Type: 
  Country: US (occurrence: US)
  Receive Date: 20121019
  Receipt Date: 20121019
  Transmission Date: 20130627
  Serious: Yes (Hospitalization, Other)
  Sender: FDA-Public Use
  Company Number: US-JNJFOC-20121006282

PATIENT
  Age: 43 Year
  Sex: Female
  Weight: 72.58 kg

DRUGS (18)
  1. REMICADE [Suspect]
     Indication: PSORIASIS
     Route: 042
     Dates: start: 201208
  2. REMICADE [Suspect]
     Indication: PSORIASIS
     Route: 042
     Dates: start: 20120827, end: 20120827
  3. REMICADE [Suspect]
     Indication: PSORIASIS
     Route: 042
     Dates: end: 200908
  4. REMICADE [Suspect]
     Indication: PSORIATIC ARTHROPATHY
     Route: 042
     Dates: start: 201208
  5. REMICADE [Suspect]
     Indication: PSORIATIC ARTHROPATHY
     Route: 042
     Dates: start: 20120827, end: 20120827
  6. REMICADE [Suspect]
     Indication: PSORIATIC ARTHROPATHY
     Route: 042
     Dates: end: 200908
  7. HUMIRA [Suspect]
     Indication: PSORIASIS
     Route: 065
     Dates: start: 20120917
  8. HUMIRA [Suspect]
     Indication: PSORIASIS
     Route: 065
     Dates: start: 2009, end: 2011
  9. HUMIRA [Suspect]
     Indication: PSORIATIC ARTHROPATHY
     Route: 065
     Dates: start: 20120917
  10. HUMIRA [Suspect]
     Indication: PSORIATIC ARTHROPATHY
     Route: 065
     Dates: start: 2009, end: 2011
  11. DILAUDID [Suspect]
     Indication: PAIN
     Route: 065
     Dates: start: 201112, end: 201112
  12. METHOTREXATE [Suspect]
     Indication: PSORIASIS
     Route: 065
     Dates: start: 201207, end: 201207
  13. METHOTREXATE [Suspect]
     Indication: PSORIATIC ARTHROPATHY
     Route: 065
     Dates: start: 201207, end: 201207
  14. ATIVAN [Concomitant]
     Indication: SLEEP DISORDER
     Route: 065
  15. BENADRYL [Concomitant]
     Indication: SLEEP DISORDER
     Route: 065
  16. CETIRIZINE W/PSEUDOEPHEDRINE [Concomitant]
     Indication: SEASONAL ALLERGY
     Route: 065
  17. OMEPRAZOLE [Concomitant]
     Indication: DYSPEPSIA
     Route: 065
  18. OMEPRAZOLE [Concomitant]
     Indication: DYSPEPSIA
     Route: 065

REACTIONS (9)
  - Invasive ductal breast carcinoma [Unknown]
  - Anaphylactic reaction [Recovered/Resolved]
  - Procedural pain [Unknown]
  - Infusion related reaction [Recovered/Resolved]
  - Psoriatic arthropathy [Unknown]
  - Constipation [Recovered/Resolved]
  - Influenza [Recovered/Resolved]
  - Nausea [Recovered/Resolved]
  - Diarrhoea [Recovered/Resolved]
